FAERS Safety Report 21949344 (Version 1)
Quarter: 2023Q1

REPORT INFORMATION
  Report Type: Spontaneous
  Country: US (occurrence: US)
  Receive Date: 20230203
  Receipt Date: 20230203
  Transmission Date: 20230418
  Serious: Yes (Hospitalization)
  Sender: FDA-Public Use
  Company Number: US-drreddys-LIT/USA/23/0160724

PATIENT
  Age: 10 Year
  Sex: Male

DRUGS (4)
  1. MERCAPTOPURINE [Suspect]
     Active Substance: MERCAPTOPURINE
     Indication: Acute lymphocytic leukaemia
     Dosage: DOSES WERE INCREASED BY 120 PERCENT AND 125 PERCENT OF THE ORIGINAL DOSE, RESPECTIVELY IN CYCLE 5
  2. DEXAMETHASONE [Suspect]
     Active Substance: DEXAMETHASONE
     Indication: Acute lymphocytic leukaemia
  3. VINCRISTINE [Suspect]
     Active Substance: VINCRISTINE
     Indication: Acute lymphocytic leukaemia
  4. METHOTREXATE [Suspect]
     Active Substance: METHOTREXATE
     Indication: Acute lymphocytic leukaemia
     Dosage: DOSES WERE INCREASED BY 120 PERCENT AND 125 PERCENT OF THE ORIGINAL DOSE, RESPECTIVELY IN CYCLE 5
     Route: 048

REACTIONS (1)
  - Venoocclusive liver disease [Recovering/Resolving]
